FAERS Safety Report 17881324 (Version 8)
Quarter: 2020Q4

REPORT INFORMATION
  Report Type: Report from Study
  Country: PA (occurrence: PA)
  Receive Date: 20200610
  Receipt Date: 20201217
  Transmission Date: 20210113
  Serious: Yes (Life-Threatening, Hospitalization, Other)
  Sender: FDA-Public Use
  Company Number: PA-INCYTE CORPORATION-2019IN005859

PATIENT

DRUGS (5)
  1. JAKAVI [Suspect]
     Active Substance: RUXOLITINIB
     Indication: PRIMARY MYELOFIBROSIS
     Dosage: 10 MG, BID
     Route: 048
     Dates: start: 201812
  2. JAKAVI [Suspect]
     Active Substance: RUXOLITINIB
     Dosage: 15 MG, BID
     Route: 048
  3. JAKAVI [Suspect]
     Active Substance: RUXOLITINIB
     Dosage: 15 MG, BID (3 TABLETS OF 5 MG IN THE MORNING AND 3 TABLETS OF 5 MG IN THE AFTERNOON)
     Route: 048
     Dates: start: 20181224
  4. JAKAVI [Suspect]
     Active Substance: RUXOLITINIB
     Dosage: 5 MG
     Route: 048
  5. JAKAVI [Suspect]
     Active Substance: RUXOLITINIB
     Dosage: 10 MG (2 TABLETS OF 5 MG)
     Route: 048
     Dates: start: 20200523

REACTIONS (26)
  - Disease recurrence [Unknown]
  - Tachycardia [Recovered/Resolved]
  - COVID-19 [Recovering/Resolving]
  - Vomiting [Unknown]
  - Arthralgia [Recovering/Resolving]
  - Headache [Unknown]
  - Pain [Unknown]
  - Abdominal distension [Unknown]
  - Depressed mood [Unknown]
  - Contusion [Unknown]
  - Weight increased [Unknown]
  - Platelet count increased [Unknown]
  - Blast cell count increased [Unknown]
  - Fatigue [Unknown]
  - Agitation [Recovered/Resolved]
  - Chills [Unknown]
  - Feeling of despair [Unknown]
  - Musculoskeletal chest pain [Unknown]
  - Expired product administered [Unknown]
  - Nausea [Unknown]
  - Chest pain [Unknown]
  - Pyrexia [Unknown]
  - White blood cell count increased [Not Recovered/Not Resolved]
  - Platelet count decreased [Unknown]
  - Drug ineffective [Unknown]
  - Haemoglobin decreased [Unknown]

NARRATIVE: CASE EVENT DATE: 202006
